FAERS Safety Report 9582949 (Version 2)
Quarter: 2013Q4

REPORT INFORMATION
  Report Type: Spontaneous
  Country: US (occurrence: US)
  Receive Date: 20131002
  Receipt Date: 20131002
  Transmission Date: 20140711
  Serious: No
  Sender: FDA-Public Use
  Company Number: US-AMGEN-USASP2013042529

PATIENT
  Age: 60 Year
  Sex: Male
  Weight: 101.59 kg

DRUGS (20)
  1. ENBREL [Suspect]
     Indication: PSORIATIC ARTHROPATHY
     Dosage: 50 MG, Q2WK
     Route: 058
     Dates: start: 20130312
  2. REMICADE [Concomitant]
     Dosage: 100 MG, UNK
  3. TRAZODONE HCL [Concomitant]
     Dosage: 50 MG, QHS,PRN
     Route: 048
  4. ETODOLAC [Concomitant]
     Dosage: 400 MG, BID
     Route: 048
  5. MULTIVITAMINS, PLAIN [Concomitant]
     Dosage: UNK UNK, QD
     Route: 048
  6. LISINOPRIL [Concomitant]
     Dosage: 40 MG, BID
     Route: 048
  7. ASPIRIN [Concomitant]
     Dosage: 81 MG, QD
     Route: 048
  8. TYLENOL                            /00020001/ [Concomitant]
     Dosage: 325 MG, QD
     Route: 048
  9. NEXIUM                             /01479302/ [Concomitant]
     Dosage: 40 MG, QD
     Route: 048
  10. SIMVASTATIN [Concomitant]
     Dosage: 40 MG, QD
     Route: 048
  11. ALLEGRA [Concomitant]
     Dosage: 180 MG, QD
     Route: 048
  12. HYDROCHLOROTHIAZIDE [Concomitant]
     Dosage: 12.5 MG, QD
     Route: 048
  13. BETAMETHASONE DIPROPIONATE [Concomitant]
     Dosage: 0.05 %, BID
  14. B-COMPLEX                          /06817001/ [Concomitant]
     Dosage: 50, UNK
  15. SILYMARIN [Concomitant]
     Dosage: 500 MG, UNK
  16. CALCIUM MAGNESIUM ZINC FORTE [Concomitant]
     Dosage: UNK
  17. POTASSIUM [Concomitant]
     Dosage: UNK
  18. FISH OIL [Concomitant]
     Dosage: UNK UNK, QD
     Route: 048
  19. ADVIL                              /00109201/ [Concomitant]
     Dosage: 200 MG,PRN, UNK
  20. MTX                                /00113801/ [Concomitant]
     Dosage: UNK

REACTIONS (3)
  - Headache [Recovered/Resolved]
  - Therapeutic response decreased [Unknown]
  - Injection site pain [Recovered/Resolved]
